FAERS Safety Report 12513601 (Version 1)
Quarter: 2016Q2

REPORT INFORMATION
  Report Type: Spontaneous
  Country: US (occurrence: None)
  Receive Date: 20160629
  Receipt Date: 20160629
  Transmission Date: 20160815
  Serious: No
  Sender: FDA-Public Use
  Company Number: None

PATIENT
  Age: 43 Year
  Sex: Male

DRUGS (5)
  1. ABILIFY MAINTENA [Concomitant]
     Active Substance: ARIPIPRAZOLE
  2. AMOX/CLAV [Concomitant]
     Active Substance: AMOXICILLIN\CLAVULANATE POTASSIUM
  3. RIBAVIRIN. [Concomitant]
     Active Substance: RIBAVIRIN
  4. TRAMADOL. [Suspect]
     Active Substance: TRAMADOL
     Indication: EAR PAIN
     Dosage: 50 MG Q12H PRN ORAL
     Route: 048
     Dates: start: 20150413, end: 20150418
  5. OFLOXACIN. [Suspect]
     Active Substance: OFLOXACIN
     Indication: TYMPANIC MEMBRANE PERFORATION
     Dosage: 10 DROPS BID LEFT EAR
     Dates: start: 20150412, end: 20150414

REACTIONS (3)
  - Rash erythematous [None]
  - Rash macular [None]
  - Rash [None]

NARRATIVE: CASE EVENT DATE: 20150414
